FAERS Safety Report 11214704 (Version 1)
Quarter: 2015Q2

REPORT INFORMATION
  Report Type: Spontaneous
  Country: US (occurrence: US)
  Receive Date: 20150624
  Receipt Date: 20150624
  Transmission Date: 20150821
  Serious: No
  Sender: FDA-Public Use
  Company Number: US-BAYER-2015-334738

PATIENT
  Age: 63 Year
  Sex: Female
  Weight: 61.22 kg

DRUGS (1)
  1. OXYTROL FOR WOMEN [Suspect]
     Active Substance: OXYBUTYNIN
     Indication: URINARY INCONTINENCE
     Dosage: UNK
     Dates: start: 201404

REACTIONS (2)
  - Product adhesion issue [None]
  - Drug administered at inappropriate site [Unknown]
